FAERS Safety Report 11125706 (Version 1)
Quarter: 2015Q2

REPORT INFORMATION
  Report Type: Report from Study
  Country: KR (occurrence: KR)
  Receive Date: 20150520
  Receipt Date: 20150520
  Transmission Date: 20150821
  Serious: Yes (Hospitalization)
  Sender: FDA-Public Use
  Company Number: PHHY2015KR060633

PATIENT
  Age: 62 Year
  Sex: Male
  Weight: 73.3 kg

DRUGS (7)
  1. ULTRACET [Concomitant]
     Active Substance: ACETAMINOPHEN\TRAMADOL HYDROCHLORIDE
     Indication: PAIN
     Dosage: 1 DF, BID
     Route: 065
     Dates: start: 20150428, end: 20150512
  2. CELEBREX [Concomitant]
     Active Substance: CELECOXIB
     Indication: PROPHYLAXIS
     Dosage: 200 MG, QD
     Route: 065
     Dates: start: 20150428, end: 20150512
  3. AMN107 [Suspect]
     Active Substance: NILOTINIB
     Indication: CHRONIC MYELOID LEUKAEMIA
     Dosage: 600 MG, QD
     Route: 048
     Dates: start: 20150317
  4. PETHIDINE [Concomitant]
     Active Substance: MEPERIDINE
     Indication: PAIN
     Dosage: 25 MG, UNK
     Route: 065
     Dates: start: 20150428, end: 20150511
  5. NORSPAN-M [Concomitant]
     Indication: PAIN
     Dosage: 1 DF, UNK
     Route: 065
     Dates: start: 20150428, end: 20150510
  6. CRAVIT [Concomitant]
     Active Substance: LEVOFLOXACIN
     Indication: PROPHYLAXIS
     Dosage: 300 MG, QD
     Route: 065
     Dates: start: 20150428, end: 20150512
  7. CEFAZEDONE [Concomitant]
     Active Substance: CEFAZEDONE
     Indication: PROPHYLAXIS
     Dosage: 1 UNK, TID
     Route: 065
     Dates: start: 20150428, end: 20150428

REACTIONS (1)
  - Procedural complication [Recovered/Resolved]

NARRATIVE: CASE EVENT DATE: 20150428
